FAERS Safety Report 5008355-4 (Version None)
Quarter: 2006Q2

REPORT INFORMATION
  Report Type: 
  Country: None (occurrence: None)
  Receive Date: 20060404
  Receipt Date: 20060131
  Transmission Date: 20061013
  Serious: No
  Sender: FDA-Public Use
  Company Number: US200602000136

PATIENT
  Age: 32 Year
  Sex: Female

DRUGS (6)
  1. CYMBALTA [Suspect]
     Indication: PAIN
     Dosage: 60 MG, 3/D   : 20 MG, 3/D
     Dates: start: 20060101
  2. MORPHINE SULFATE [Concomitant]
  3. PERCOCET [Concomitant]
  4. KLONOPIN [Concomitant]
  5. ATARAX [Concomitant]
  6. PREGABALIN [Concomitant]

REACTIONS (12)
  - ABDOMINAL PAIN UPPER [None]
  - ACCIDENTAL OVERDOSE [None]
  - DYSURIA [None]
  - EAR INFECTION [None]
  - HEADACHE [None]
  - HYPERHIDROSIS [None]
  - INFLUENZA LIKE ILLNESS [None]
  - LOCALISED INFECTION [None]
  - MEDICATION ERROR [None]
  - MOOD ALTERED [None]
  - NAIL DISCOLOURATION [None]
  - OEDEMA PERIPHERAL [None]
